FAERS Safety Report 9596153 (Version 3)
Quarter: 2015Q2

REPORT INFORMATION
  Report Type: Spontaneous
  Country: US (occurrence: US)
  Receive Date: 20131004
  Receipt Date: 20150521
  Transmission Date: 20150821
  Serious: Yes (Death, Hospitalization, Other)
  Sender: FDA-Public Use
  Company Number: US-009507513-1310USA001644

PATIENT
  Sex: Female
  Weight: 53.97 kg

DRUGS (1)
  1. JANUVIA [Suspect]
     Active Substance: SITAGLIPTIN PHOSPHATE
     Indication: TYPE 2 DIABETES MELLITUS
     Dosage: 100 MG, QD
     Route: 048
     Dates: start: 20090602, end: 20101018

REACTIONS (29)
  - Cardio-respiratory arrest [Fatal]
  - Hypertension [Unknown]
  - Tachycardia [Unknown]
  - Urinary tract infection [Unknown]
  - Hysterectomy [Unknown]
  - Nasal septal operation [Unknown]
  - Transient ischaemic attack [Unknown]
  - Pancreatic carcinoma [Fatal]
  - Renal failure [Unknown]
  - Breast operation [Unknown]
  - Hyponatraemia [Unknown]
  - Dyslipidaemia [Unknown]
  - Metastatic neoplasm [Unknown]
  - Adverse drug reaction [Unknown]
  - Stress urinary incontinence [Unknown]
  - Stent placement [Unknown]
  - Rectocele [Unknown]
  - Drug tolerance decreased [Unknown]
  - Hypothyroidism [Unknown]
  - Pneumonia [Unknown]
  - Hypokalaemia [Unknown]
  - Migraine [Unknown]
  - Anaemia [Unknown]
  - Headache [Unknown]
  - Metastases to lung [Unknown]
  - Pancreatitis [Recovering/Resolving]
  - Cystocele [Unknown]
  - Adverse event [Unknown]
  - Pleural effusion [Unknown]

NARRATIVE: CASE EVENT DATE: 201011
